FAERS Safety Report 15746004 (Version 1)
Quarter: 2018Q4

REPORT INFORMATION
  Report Type: Spontaneous
  Country: JP (occurrence: JP)
  Receive Date: 20181220
  Receipt Date: 20181220
  Transmission Date: 20190205
  Serious: Yes (Death)
  Sender: FDA-Public Use
  Company Number: JP-ACTELION-A-US2018-184009

PATIENT
  Age: 51 Year
  Sex: Female

DRUGS (7)
  1. OPSUMIT [Concomitant]
     Active Substance: MACITENTAN
  2. BERAPROST [Concomitant]
     Active Substance: BERAPROST
  3. VENTAVIS [Suspect]
     Active Substance: ILOPROST
     Indication: PULMONARY ARTERIAL HYPERTENSION
     Dosage: 10 MCG, 6ID
     Route: 055
     Dates: start: 20180922, end: 20180924
  4. REVATIO [Concomitant]
     Active Substance: SILDENAFIL CITRATE
  5. BELSOMRA [Concomitant]
     Active Substance: SUVOREXANT
  6. ROZEREM [Concomitant]
     Active Substance: RAMELTEON
  7. SENNOSIDE [Concomitant]
     Active Substance: SENNOSIDES

REACTIONS (3)
  - Pulmonary arterial hypertension [Fatal]
  - Condition aggravated [Fatal]
  - Gastric cancer [Fatal]
